FAERS Safety Report 23892369 (Version 2)
Quarter: 2024Q2

REPORT INFORMATION
  Report Type: Spontaneous
  Country: US (occurrence: US)
  Receive Date: 20240524
  Receipt Date: 20240607
  Transmission Date: 20240716
  Serious: No
  Sender: FDA-Public Use
  Company Number: US-BRISTOL-MYERS SQUIBB COMPANY-2024-077267

PATIENT
  Sex: Female

DRUGS (3)
  1. ZEPOSIA [Suspect]
     Active Substance: OZANIMOD HYDROCHLORIDE
     Indication: Relapsing-remitting multiple sclerosis
     Route: 048
     Dates: start: 202208
  2. PREGABALIN [Concomitant]
     Active Substance: PREGABALIN
     Indication: Neuralgia
     Route: 048
  3. PREGABALIN [Concomitant]
     Active Substance: PREGABALIN
     Route: 048
     Dates: start: 202209

REACTIONS (7)
  - Tremor [Unknown]
  - Electric shock sensation [Unknown]
  - Multiple sclerosis relapse [Recovered/Resolved]
  - Insomnia [Unknown]
  - Ageusia [Unknown]
  - Fatigue [Unknown]
  - Brain fog [Unknown]

NARRATIVE: CASE EVENT DATE: 20221101
